FAERS Safety Report 14998958 (Version 1)
Quarter: 2018Q2

REPORT INFORMATION
  Report Type: Spontaneous
  Country: ZA (occurrence: ZA)
  Receive Date: 20180612
  Receipt Date: 20180612
  Transmission Date: 20180711
  Serious: Yes (Hospitalization)
  Sender: FDA-Public Use
  Company Number: ZA-009507513-1806ZAF002659

PATIENT
  Age: 64 Year
  Sex: Female

DRUGS (10)
  1. ZYVOXID [Concomitant]
     Active Substance: LINEZOLID
     Route: 042
  2. CANCIDAS [Suspect]
     Active Substance: CASPOFUNGIN ACETATE
     Indication: CANDIDA INFECTION
     Dosage: 70 MG, UNK
     Route: 042
     Dates: start: 20180402
  3. LOPERAMIDE [Concomitant]
     Active Substance: LOPERAMIDE
     Route: 048
  4. NEXIPRAZ [Concomitant]
     Active Substance: ESOMEPRAZOLE
     Route: 042
  5. CASPOFUNGIN ACETATE. [Suspect]
     Active Substance: CASPOFUNGIN ACETATE
     Indication: CANDIDA INFECTION
     Dosage: 50 MG, UNK
     Route: 042
     Dates: start: 20180407, end: 20180416
  6. SERENACE [Concomitant]
     Active Substance: HALOPERIDOL
     Route: 048
  7. MEROPENEM. [Concomitant]
     Active Substance: MEROPENEM
     Route: 042
  8. CANCIDAS [Suspect]
     Active Substance: CASPOFUNGIN ACETATE
     Indication: CANDIDA INFECTION
     Dosage: 50 MG, UNK
     Route: 042
     Dates: start: 20180403, end: 20180407
  9. PRECEDEX [Concomitant]
     Active Substance: DEXMEDETOMIDINE HYDROCHLORIDE
     Route: 042
  10. CLEXANE (ENOXAPARIN SODIUM) [Concomitant]
     Active Substance: ENOXAPARIN SODIUM
     Route: 058

REACTIONS (1)
  - Drug ineffective [Recovered/Resolved]

NARRATIVE: CASE EVENT DATE: 201804
